FAERS Safety Report 13754185 (Version 1)
Quarter: 2017Q3

REPORT INFORMATION
  Report Type: Spontaneous
  Country: US (occurrence: US)
  Receive Date: 20170714
  Receipt Date: 20170714
  Transmission Date: 20171127
  Serious: No
  Sender: FDA-Public Use
  Company Number: None

PATIENT
  Age: 69 Year
  Sex: Female

DRUGS (1)
  1. CAPECITABINE TAB 500MG [Suspect]
     Active Substance: CAPECITABINE

REACTIONS (4)
  - Tenderness [None]
  - Pain [None]
  - Palmar-plantar erythrodysaesthesia syndrome [None]
  - Pain in extremity [None]

NARRATIVE: CASE EVENT DATE: 20170518
